FAERS Safety Report 7180215-2 (Version None)
Quarter: 2010Q4

REPORT INFORMATION
  Report Type: 
  Country: None (occurrence: None)
  Receive Date: 20101208
  Receipt Date: 20101129
  Transmission Date: 20110411
  Serious: Yes (Hospitalization)
  Sender: FDA-Public Use
  Company Number: 2010US004356

PATIENT
  Age: 40 Year
  Sex: Male
  Weight: 59 kg

DRUGS (3)
  1. PROGRAF [Suspect]
     Indication: RENAL TRANSPLANT
     Dosage: 0.5 MG BID AND 2 MG BID, ORAL
     Route: 048
  2. MYCOPHENOLIC ACID [Concomitant]
  3. CALCIUM (COLECALCIFEROL) [Concomitant]

REACTIONS (1)
  - ARTERIOVENOUS FISTULA ANEURYSM [None]
